FAERS Safety Report 6693622-9 (Version None)
Quarter: 2010Q2

REPORT INFORMATION
  Report Type: 
  Country: None (occurrence: None)
  Receive Date: 20100423
  Receipt Date: 20100416
  Transmission Date: 20101027
  Serious: Yes (Life-Threatening, Hospitalization)
  Sender: FDA-Public Use
  Company Number: US-CELGENEUS-163-21880-10032479

PATIENT
  Sex: Male

DRUGS (9)
  1. REVLIMID [Suspect]
     Route: 048
     Dates: start: 20100305, end: 20100322
  2. ANTIBIOTICS [Concomitant]
     Route: 065
  3. ALPHA LIPOIC ACID [Concomitant]
     Route: 065
  4. VALTREX [Concomitant]
     Route: 065
  5. VALTREX [Concomitant]
     Indication: PROPHYLAXIS
  6. ACETYL L-CARNITINE [Concomitant]
     Route: 065
  7. DHA  720 [Concomitant]
     Route: 065
  8. CARVEDILOL [Concomitant]
     Indication: HYPERTENSION
     Route: 065
  9. EPA [Concomitant]
     Indication: CORONARY ARTERY DISEASE
     Route: 065

REACTIONS (1)
  - ALVEOLITIS ALLERGIC [None]
